FAERS Safety Report 10666042 (Version 1)
Quarter: 2014Q4

REPORT INFORMATION
  Report Type: Spontaneous
  Country: US (occurrence: None)
  Receive Date: 20141208
  Receipt Date: 20141208
  Transmission Date: 20150529
  Serious: No
  Sender: FDA-Public Use
  Company Number: 2014TUS006485

PATIENT
  Age: 50 Year
  Sex: Female
  Weight: 75.7 kg

DRUGS (6)
  1. BIOTIN [Concomitant]
     Active Substance: BIOTIN
  2. BRINTELLIX [Suspect]
     Active Substance: VORTIOXETINE HYDROBROMIDE
     Indication: MAJOR DEPRESSION
     Route: 048
     Dates: start: 20140527, end: 20140707
  3. HERBALIFE [Concomitant]
  4. BRINTELLIX [Suspect]
     Active Substance: VORTIOXETINE HYDROBROMIDE
     Indication: DEPRESSION
     Route: 048
     Dates: start: 20140527, end: 20140707
  5. ASPIRIN. [Concomitant]
     Active Substance: ASPIRIN
  6. OMEGA 3-FA (FISH OIL) [Concomitant]

REACTIONS (2)
  - Paranasal sinus discomfort [None]
  - Salivary hypersecretion [None]
